FAERS Safety Report 5640801-5 (Version None)
Quarter: 2008Q1

REPORT INFORMATION
  Report Type: 
  Country: None (occurrence: None)
  Receive Date: 20080131
  Receipt Date: 20071107
  Transmission Date: 20080703
  Serious: No
  Sender: FDA-Public Use
  Company Number: 163-21880-07110385

PATIENT
  Age: 68 Year
  Sex: Female

DRUGS (2)
  1. REVLIMID [Suspect]
     Indication: MULTIPLE MYELOMA
     Dosage: 15 MG, DAILY FOR 3 WEEKS, ORAL ; 10 MG, DAILY EVERY 3 WEEKS, ORAL
     Route: 048
     Dates: start: 20070810, end: 20071101
  2. REVLIMID [Suspect]
     Indication: MULTIPLE MYELOMA
     Dosage: 15 MG, DAILY FOR 3 WEEKS, ORAL ; 10 MG, DAILY EVERY 3 WEEKS, ORAL
     Route: 048
     Dates: start: 20071106

REACTIONS (3)
  - ASTHENIA [None]
  - CONSTIPATION [None]
  - DYSPNOEA EXERTIONAL [None]
